FAERS Safety Report 4583550-7 (Version None)
Quarter: 2005Q1

REPORT INFORMATION
  Report Type: 
  Country: None (occurrence: None)
  Receive Date: 20050125
  Receipt Date: 20041104
  Transmission Date: 20050727
  Serious: No
  Sender: FDA-Public Use
  Company Number: USA041183153

PATIENT
  Age: 69 Year
  Sex: Female

DRUGS (3)
  1. FORTEO [Suspect]
     Indication: OSTEOPOROSIS
     Dosage: 20 UG/1 DAY
     Dates: start: 20040604
  2. BENADRYL [Concomitant]
  3. DECONGESTANT [Concomitant]

REACTIONS (6)
  - ARTHRITIS VIRAL [None]
  - BACK PAIN [None]
  - DIFFICULTY IN WALKING [None]
  - FEELING ABNORMAL [None]
  - PAIN [None]
  - VIRAL INFECTION [None]
